FAERS Safety Report 11192232 (Version 1)
Quarter: 2015Q2

REPORT INFORMATION
  Report Type: Spontaneous
  Country: GB (occurrence: GB)
  Receive Date: 20150616
  Receipt Date: 20150616
  Transmission Date: 20150821
  Serious: Yes (Other)
  Sender: FDA-Public Use
  Company Number: GB-009507513-1506GBR006291

PATIENT

DRUGS (1)
  1. EZETROL [Suspect]
     Active Substance: EZETIMIBE
     Dosage: 10 MG
     Route: 048

REACTIONS (7)
  - Pain in extremity [Unknown]
  - Malaise [Unknown]
  - Fatigue [Unknown]
  - Suicidal ideation [Unknown]
  - Abdominal pain upper [Unknown]
  - Adverse event [Unknown]
  - Asthenia [Unknown]
